FAERS Safety Report 8448991-6 (Version None)
Quarter: 2012Q2

REPORT INFORMATION
  Report Type: 
  Country: None (occurrence: None)
  Receive Date: 20120611
  Receipt Date: 20120529
  Transmission Date: 20120825
  Serious: Yes (Life-Threatening, Hospitalization)
  Sender: FDA-Public Use
  Company Number: 2012P1035096

PATIENT
  Age: 25 Year
  Sex: Male

DRUGS (1)
  1. CHLOROQUINE DIPHOSPHATE [Suspect]
     Indication: PYREXIA
     Dosage: 1200 MG; X1; PO
     Route: 048

REACTIONS (5)
  - CYANOSIS [None]
  - LOSS OF CONSCIOUSNESS [None]
  - OXYGEN SATURATION DECREASED [None]
  - PO2 INCREASED [None]
  - METHAEMOGLOBINAEMIA [None]
